FAERS Safety Report 8856838 (Version 1)
Quarter: 2012Q4

REPORT INFORMATION
  Report Type: Spontaneous
  Country: US (occurrence: None)
  Receive Date: 20121023
  Receipt Date: 20121023
  Transmission Date: 20130627
  Serious: Yes (Other)
  Sender: FDA-Public Use
  Company Number: None

PATIENT
  Age: 39 Year
  Sex: Male
  Weight: 62.14 kg

DRUGS (1)
  1. LARIAM [Suspect]
     Indication: MALARIA
     Route: 048
     Dates: start: 19911013, end: 19940310

REACTIONS (9)
  - Haematochezia [None]
  - Vomiting [None]
  - Underweight [None]
  - Sleep disorder [None]
  - Amnesia [None]
  - Muscle twitching [None]
  - Blood pressure increased [None]
  - Antisocial behaviour [None]
  - Impaired work ability [None]
